FAERS Safety Report 16111054 (Version 1)
Quarter: 2019Q1

REPORT INFORMATION
  Report Type: Report from Study
  Country: MX (occurrence: MX)
  Receive Date: 20190325
  Receipt Date: 20190325
  Transmission Date: 20190418
  Serious: Yes (Death, Hospitalization)
  Sender: FDA-Public Use
  Company Number: MX-UCBSA-2019008463

PATIENT
  Age: 87 Year
  Sex: Female

DRUGS (4)
  1. ISORBID [Concomitant]
     Active Substance: ISOSORBIDE DINITRATE
     Indication: PRODUCT USED FOR UNKNOWN INDICATION
  2. ROTIGOTINE [Suspect]
     Active Substance: ROTIGOTINE
     Indication: PRODUCT USED FOR UNKNOWN INDICATION
     Dosage: 6 MG, ONCE DAILY (QD)
     Dates: start: 201902, end: 20190215
  3. SUPRADOL [Concomitant]
     Indication: BLOOD PRESSURE INCREASED
  4. ROTIGOTINE [Suspect]
     Active Substance: ROTIGOTINE
     Dosage: 6 MG, ONCE DAILY (QD)
     Dates: start: 20190220, end: 2019

REACTIONS (6)
  - Dysphagia [Unknown]
  - Somnolence [Unknown]
  - Death [Fatal]
  - Off label use [Unknown]
  - Cerebral infarction [Recovered/Resolved]
  - Personality change [Unknown]

NARRATIVE: CASE EVENT DATE: 2019
